FAERS Safety Report 5753301-9 (Version None)
Quarter: 2008Q2

REPORT INFORMATION
  Report Type: 
  Country: None (occurrence: None)
  Receive Date: 20080530
  Receipt Date: 20071127
  Transmission Date: 20081010
  Serious: No
  Sender: FDA-Public Use
  Company Number: A0697985A

PATIENT

DRUGS (3)
  1. VENTOLIN [Suspect]
     Route: 055
  2. PROVENTIL [Suspect]
     Route: 055
  3. PROAIR HFA [Suspect]
     Route: 055

REACTIONS (3)
  - DRUG ADMINISTRATION ERROR [None]
  - DRUG INEFFECTIVE [None]
  - FEELING JITTERY [None]
